FAERS Safety Report 5792090-9 (Version None)
Quarter: 2008Q2

REPORT INFORMATION
  Report Type: 
  Country: None (occurrence: None)
  Receive Date: 20080626
  Receipt Date: 20080307
  Transmission Date: 20081010
  Serious: No
  Sender: FDA-Public Use
  Company Number: US-ASTRAZENECA-2008UW04789

PATIENT
  Age: 7 Year
  Sex: Female

DRUGS (1)
  1. PULMICORT-100 [Suspect]
     Indication: ASTHMA
     Route: 055

REACTIONS (2)
  - EAR PAIN [None]
  - NASOPHARYNGITIS [None]
